FAERS Safety Report 8417159-1 (Version None)
Quarter: 2012Q2

REPORT INFORMATION
  Report Type: 
  Country: None (occurrence: None)
  Receive Date: 20120606
  Receipt Date: 20120601
  Transmission Date: 20120825
  Serious: Yes (Hospitalization)
  Sender: FDA-Public Use
  Company Number: FR-PFIZER INC-2012113865

PATIENT
  Age: 74 Year
  Sex: Female

DRUGS (6)
  1. SITAGLIPTIN PHOSPHATE [Concomitant]
     Dosage: UNK
     Route: 048
     Dates: start: 20100101
  2. ACARBOSE [Concomitant]
     Route: 048
  3. ATORVASTATIN [Suspect]
     Dosage: 10 MG, UNK
     Route: 048
     Dates: start: 20110729, end: 20111007
  4. EPREX [Concomitant]
     Dosage: UNK
     Route: 058
     Dates: start: 20101001
  5. PERINDOPRIL ERBUMINE [Concomitant]
     Route: 048
  6. AMLODIPINE BESYLATE [Concomitant]
     Route: 048

REACTIONS (1)
  - CYTOLYTIC HEPATITIS [None]
